FAERS Safety Report 4512489-8 (Version None)
Quarter: 2004Q4

REPORT INFORMATION
  Report Type: 
  Country: None (occurrence: None)
  Receive Date: 20041124
  Receipt Date: 20041109
  Transmission Date: 20050328
  Serious: Yes (Hospitalization)
  Sender: FDA-Public Use
  Company Number: USA041183655

PATIENT
  Age: 50 Year
  Sex: Female

DRUGS (1)
  1. GEMZAR [Suspect]
     Indication: OVARIAN CANCER
     Dosage: 750 MG/M2

REACTIONS (3)
  - NEOPLASM RECURRENCE [None]
  - NEPHROPATHY TOXIC [None]
  - OVARIAN CANCER [None]
